FAERS Safety Report 7639666-1 (Version None)
Quarter: 2011Q3

REPORT INFORMATION
  Report Type: 
  Country: None (occurrence: None)
  Receive Date: 20110727
  Receipt Date: 20101025
  Transmission Date: 20111222
  Serious: No
  Sender: FDA-Public Use
  Company Number: US-MYLANLABS-2010S1019619

PATIENT
  Sex: Male

DRUGS (12)
  1. ALPRAZOLAM [Concomitant]
     Indication: ANXIETY
     Route: 048
  2. TRAZODONE HCL [Suspect]
     Indication: INSOMNIA
     Route: 048
     Dates: start: 20100101, end: 20100101
  3. RITALIN [Concomitant]
     Indication: ATTENTION DEFICIT/HYPERACTIVITY DISORDER
     Route: 048
  4. XANAX [Concomitant]
     Indication: ANXIETY
     Route: 048
  5. LYSINE [Concomitant]
     Indication: VITAMIN SUPPLEMENTATION
     Route: 048
  6. METHYLPHENIDATE [Concomitant]
     Indication: ATTENTION DEFICIT/HYPERACTIVITY DISORDER
     Route: 048
  7. M.V.I. [Concomitant]
     Indication: VITAMIN SUPPLEMENTATION
     Route: 048
  8. MIRTAZAPINE [Suspect]
     Indication: INSOMNIA
     Route: 048
  9. MIRTAZAPINE [Suspect]
     Route: 048
     Dates: end: 20100901
  10. TRAZODONE HCL [Suspect]
     Route: 048
     Dates: start: 20100101, end: 20100101
  11. TRAZODONE HCL [Suspect]
     Route: 048
     Dates: start: 20100101
  12. FLUTICASONE PROPIONATE [Concomitant]
     Indication: HYPERSENSITIVITY
     Route: 048

REACTIONS (12)
  - CHEST DISCOMFORT [None]
  - OCULAR HYPERAEMIA [None]
  - RESTLESS LEGS SYNDROME [None]
  - DRY EYE [None]
  - DRUG INTERACTION [None]
  - LIBIDO DISORDER [None]
  - DRY SKIN [None]
  - OEDEMA PERIPHERAL [None]
  - TREMOR [None]
  - ACNE [None]
  - ORAL HERPES [None]
  - FAECES DISCOLOURED [None]
